FAERS Safety Report 11495104 (Version 1)
Quarter: 2015Q3

REPORT INFORMATION
  Report Type: Spontaneous
  Country: US (occurrence: US)
  Receive Date: 20150911
  Receipt Date: 20150911
  Transmission Date: 20151125
  Serious: Yes (Hospitalization, Other)
  Sender: FDA-Public Use
  Company Number: US-ROCHE-1013406

PATIENT
  Sex: Female

DRUGS (2)
  1. PEGASYS [Suspect]
     Active Substance: PEGINTERFERON ALFA-2A
     Indication: HEPATITIS C
     Route: 065
  2. RIBAVIRIN. [Suspect]
     Active Substance: RIBAVIRIN
     Indication: HEPATITIS C
     Route: 065

REACTIONS (14)
  - Productive cough [Unknown]
  - Anosmia [Unknown]
  - Weight decreased [Unknown]
  - Pyrexia [Unknown]
  - Anaemia [Unknown]
  - Disturbance in attention [Unknown]
  - Impaired work ability [Unknown]
  - Dysgeusia [Unknown]
  - Dizziness [Unknown]
  - Ageusia [Unknown]
  - Dehydration [Unknown]
  - Rash [Unknown]
  - Fatigue [Unknown]
  - Malaise [Unknown]
